FAERS Safety Report 20766269 (Version 1)
Quarter: 2022Q2

REPORT INFORMATION
  Report Type: Spontaneous
  Country: US (occurrence: US)
  Receive Date: 20220428
  Receipt Date: 20220428
  Transmission Date: 20220721
  Serious: No
  Sender: FDA-Public Use
  Company Number: US-SEATTLE GENETICS-2022SGN01633

PATIENT
  Sex: Female

DRUGS (3)
  1. TUKYSA [Suspect]
     Active Substance: TUCATINIB
     Indication: Product used for unknown indication
     Dosage: 300 MG, BID
     Route: 065
     Dates: start: 202111
  2. TUKYSA [Suspect]
     Active Substance: TUCATINIB
     Dosage: 150 MG
     Route: 065
     Dates: start: 202203
  3. TUKYSA [Suspect]
     Active Substance: TUCATINIB
     Dosage: 100 MG, QD
     Route: 065
     Dates: start: 202203

REACTIONS (2)
  - Therapy change [Unknown]
  - Product container seal issue [Unknown]

NARRATIVE: CASE EVENT DATE: 20220201
